FAERS Safety Report 4639998-5 (Version None)
Quarter: 2005Q2

REPORT INFORMATION
  Report Type: 
  Country: None (occurrence: None)
  Receive Date: 20050415
  Receipt Date: 20050415
  Transmission Date: 20051028
  Serious: No
  Sender: FDA-Public Use
  Company Number: None

PATIENT
  Age: 38 Year
  Sex: Female
  Weight: 47.6277 kg

DRUGS (1)
  1. BEXTRA [Suspect]
     Dosage: 1 PILL   3 TIMES A DAY   ORAL
     Route: 048
     Dates: start: 20030901, end: 20040516

REACTIONS (2)
  - FROSTBITE [None]
  - PAIN OF SKIN [None]
